FAERS Safety Report 5019753-7 (Version None)
Quarter: 2006Q2

REPORT INFORMATION
  Report Type: 
  Country: None (occurrence: None)
  Receive Date: 20060607
  Receipt Date: 20060516
  Transmission Date: 20061013
  Serious: Yes (Hospitalization)
  Sender: FDA-Public Use
  Company Number: PHBS2006JP07517

PATIENT
  Age: 17 Year
  Sex: Female
  Weight: 43 kg

DRUGS (5)
  1. TEGRETOL [Suspect]
     Indication: TEMPORAL LOBE EPILEPSY
     Dosage: 400 MG/DAY
     Route: 048
     Dates: start: 20060101, end: 20060308
  2. TEGRETOL [Suspect]
     Dosage: 700 MG/DAY
     Route: 048
     Dates: start: 20060309, end: 20060401
  3. TEGRETOL [Suspect]
     Dosage: 400 MG/DAY
     Route: 048
     Dates: start: 20060401, end: 20060522
  4. MAGNESIUM OXIDE [Concomitant]
     Indication: CONSTIPATION
     Dosage: 2 G/DAY
     Route: 048
     Dates: start: 20060401
  5. LAXOBERON [Concomitant]
     Indication: CONSTIPATION
     Dosage: 12 GTT
     Route: 048
     Dates: start: 20060401

REACTIONS (9)
  - CONVULSION [None]
  - GENERALISED OEDEMA [None]
  - HAEMATOCRIT DECREASED [None]
  - HAEMOGLOBIN DECREASED [None]
  - HYPOPROTEINAEMIA [None]
  - NEUTROPHIL COUNT DECREASED [None]
  - URINE OUTPUT INCREASED [None]
  - WEIGHT INCREASED [None]
  - WHITE BLOOD CELL COUNT DECREASED [None]
